FAERS Safety Report 11482980 (Version 1)
Quarter: 2015Q3

REPORT INFORMATION
  Report Type: Spontaneous
  Country: US (occurrence: US)
  Receive Date: 20150903
  Receipt Date: 20150903
  Transmission Date: 20151125
  Serious: No
  Sender: FDA-Public Use
  Company Number: US-ELI_LILLY_AND_COMPANY-US201205007171

PATIENT
  Sex: Male

DRUGS (5)
  1. CYMBALTA [Suspect]
     Active Substance: DULOXETINE HYDROCHLORIDE
     Dosage: 60 MG, UNKNOWN
  2. CYMBALTA [Suspect]
     Active Substance: DULOXETINE HYDROCHLORIDE
     Dosage: 30 MG, UNKNOWN
  3. ANTIHYPERTENSIVES [Concomitant]
     Active Substance: UNSPECIFIED INGREDIENT
     Indication: BLOOD PRESSURE MEASUREMENT
  4. CYMBALTA [Suspect]
     Active Substance: DULOXETINE HYDROCHLORIDE
     Indication: DEPRESSION
     Dosage: 60 MG, QD
  5. CYMBALTA [Suspect]
     Active Substance: DULOXETINE HYDROCHLORIDE
     Dosage: UNK, UNKNOWN

REACTIONS (12)
  - Feeling of body temperature change [Not Recovered/Not Resolved]
  - Irritability [Not Recovered/Not Resolved]
  - Dizziness [Not Recovered/Not Resolved]
  - Vomiting [Not Recovered/Not Resolved]
  - Drug dose omission [Recovered/Resolved]
  - Drug withdrawal syndrome [Not Recovered/Not Resolved]
  - Feeling abnormal [Not Recovered/Not Resolved]
  - Headache [Not Recovered/Not Resolved]
  - Intentional product misuse [Recovered/Resolved]
  - Hyperhidrosis [Not Recovered/Not Resolved]
  - Nausea [Not Recovered/Not Resolved]
  - Confusional state [Not Recovered/Not Resolved]
